FAERS Safety Report 15557179 (Version 1)
Quarter: 2018Q4

REPORT INFORMATION
  Report Type: Report from Study
  Country: US (occurrence: US)
  Receive Date: 20181026
  Receipt Date: 20181026
  Transmission Date: 20190205
  Serious: Yes (Hospitalization)
  Sender: FDA-Public Use
  Company Number: US-ACTELION-A-US2018-179808

PATIENT
  Age: 40 Year
  Sex: Female
  Weight: 72.56 kg

DRUGS (5)
  1. ADEMPAS [Concomitant]
     Active Substance: RIOCIGUAT
     Dosage: 2.5 MG, UNK
  2. VELETRI [Suspect]
     Active Substance: EPOPROSTENOL
     Indication: PULMONARY ARTERIAL HYPERTENSION
     Dosage: 8.1 NG/KG, PER MIN
     Route: 042
  3. VELETRI [Suspect]
     Active Substance: EPOPROSTENOL
     Dosage: UNK
     Route: 042
  4. LETAIRIS [Concomitant]
     Active Substance: AMBRISENTAN
  5. SILDENAFIL. [Concomitant]
     Active Substance: SILDENAFIL
     Dosage: UNK

REACTIONS (14)
  - Vomiting [Unknown]
  - Loss of consciousness [Unknown]
  - Nausea [Unknown]
  - Pain in jaw [Unknown]
  - Head injury [Recovering/Resolving]
  - Therapy change [Unknown]
  - Malaise [Unknown]
  - Food poisoning [Unknown]
  - Joint injury [Recovering/Resolving]
  - Pain in extremity [Unknown]
  - Rash [Unknown]
  - Headache [Unknown]
  - Product dose omission [Unknown]
  - Erythema [Unknown]

NARRATIVE: CASE EVENT DATE: 20180930
